FAERS Safety Report 15053917 (Version 3)
Quarter: 2018Q4

REPORT INFORMATION
  Report Type: Spontaneous
  Country: US (occurrence: US)
  Receive Date: 20180622
  Receipt Date: 20181218
  Transmission Date: 20190204
  Serious: Yes (Disabling, Other)
  Sender: FDA-Public Use
  Company Number: US-OTSUKA-2018_016490

PATIENT
  Sex: Male
  Weight: 81.63 kg

DRUGS (3)
  1. ABILIFY [Suspect]
     Active Substance: ARIPIPRAZOLE
     Dosage: 15 MG, QD
     Route: 065
     Dates: end: 2012
  2. LAMICTAL [Concomitant]
     Active Substance: LAMOTRIGINE
     Indication: PRODUCT USED FOR UNKNOWN INDICATION
     Dosage: UNK
     Route: 065
  3. ABILIFY [Suspect]
     Active Substance: ARIPIPRAZOLE
     Indication: BIPOLAR DISORDER
     Dosage: 10 MG, QD
     Route: 065
     Dates: start: 2009

REACTIONS (15)
  - Narcolepsy [Not Recovered/Not Resolved]
  - Anhedonia [Unknown]
  - Suicidal ideation [Not Recovered/Not Resolved]
  - Gambling disorder [Recovered/Resolved]
  - Drug dependence [Unknown]
  - Emotional distress [Unknown]
  - Loss of employment [Unknown]
  - Pain [Unknown]
  - Condition aggravated [Recovered/Resolved]
  - Economic problem [Unknown]
  - Mental impairment [Unknown]
  - Suicide attempt [Not Recovered/Not Resolved]
  - Disability [Unknown]
  - Injury [Unknown]
  - Social problem [Unknown]

NARRATIVE: CASE EVENT DATE: 201008
